FAERS Safety Report 4322722-3 (Version None)
Quarter: 2004Q1

REPORT INFORMATION
  Report Type: 
  Country: None (occurrence: None)
  Receive Date: 20040324
  Receipt Date: 20010924
  Transmission Date: 20041129
  Serious: Yes (Hospitalization, Other)
  Sender: FDA-Public Use
  Company Number: US-GLAXOSMITHKLINE-A0353200A

PATIENT
  Age: 31 Year
  Sex: Female
  Weight: 79.1 kg

DRUGS (1)
  1. PAXIL [Suspect]
     Indication: ANXIETY
     Route: 048
     Dates: start: 19970101, end: 19990101

REACTIONS (16)
  - ACCIDENTAL OVERDOSE [None]
  - CHORIOAMNIONITIS [None]
  - COMPLICATIONS OF MATERNAL EXPOSURE TO THERAPEUTIC DRUGS [None]
  - DRUG WITHDRAWAL SYNDROME [None]
  - ENDOMETRITIS [None]
  - FEELING ABNORMAL [None]
  - FOETAL MALPOSITION [None]
  - HYPOKINESIA [None]
  - IMMOBILE [None]
  - INSOMNIA [None]
  - PREGNANCY [None]
  - PREMATURE LABOUR [None]
  - PREMATURE RUPTURE OF MEMBRANES [None]
  - PYREXIA [None]
  - TOCOLYSIS [None]
  - VAGINAL HAEMORRHAGE [None]
